FAERS Safety Report 5842085-1 (Version None)
Quarter: 2008Q3

REPORT INFORMATION
  Report Type: 
  Country: None (occurrence: None)
  Receive Date: 20080731
  Receipt Date: 20080613
  Transmission Date: 20090109
  Serious: No
  Sender: FDA-Public Use
  Company Number: US200806003378

PATIENT
  Age: 52 Year
  Sex: Male
  Weight: 104.3 kg

DRUGS (19)
  1. BYETTA [Suspect]
     Indication: TYPE 2 DIABETES MELLITUS
     Dosage: 5 UG, 2/D, SUBCUTANEOUS; 10 UG, 2/D, SUBCUTANEOUS; 5 UG, 2/D, SUBCUTANEOUS
     Route: 058
     Dates: start: 20071001, end: 20070101
  2. BYETTA [Suspect]
     Indication: TYPE 2 DIABETES MELLITUS
     Dosage: 5 UG, 2/D, SUBCUTANEOUS; 10 UG, 2/D, SUBCUTANEOUS; 5 UG, 2/D, SUBCUTANEOUS
     Route: 058
     Dates: start: 20070101, end: 20080601
  3. BYETTA [Suspect]
     Indication: TYPE 2 DIABETES MELLITUS
     Dosage: 5 UG, 2/D, SUBCUTANEOUS; 10 UG, 2/D, SUBCUTANEOUS; 5 UG, 2/D, SUBCUTANEOUS
     Route: 058
     Dates: start: 20080601
  4. METFORMIN HCL [Concomitant]
  5. ANTI-SMOKING AGENTS [Concomitant]
  6. LANTUS [Concomitant]
  7. INSULIN (INSULIN) [Concomitant]
  8. GLIPIZIDE [Concomitant]
  9. LIPITOR [Concomitant]
  10. LASIX [Concomitant]
  11. BENAZEPRIL HCL [Concomitant]
  12. NORVASC [Concomitant]
  13. PLAVIX [Concomitant]
  14. TYLENOL /SCH/ (PARACETAMOL) [Concomitant]
  15. TRAMADOL HCL [Concomitant]
  16. AMBIEN [Concomitant]
  17. GABAPENTIN [Concomitant]
  18. METAPROTERENOL SULFATE [Concomitant]
  19. NITROGLYCERIN [Concomitant]

REACTIONS (9)
  - BLOOD GLUCOSE INCREASED [None]
  - DECREASED APPETITE [None]
  - DYSGEUSIA [None]
  - GASTROOESOPHAGEAL REFLUX DISEASE [None]
  - MEAN CELL HAEMOGLOBIN INCREASED [None]
  - NAUSEA [None]
  - NEUROPATHY PERIPHERAL [None]
  - RENAL FAILURE [None]
  - WEIGHT INCREASED [None]
